FAERS Safety Report 25946795 (Version 1)
Quarter: 2025Q4

REPORT INFORMATION
  Report Type: Spontaneous
  Country: US (occurrence: US)
  Receive Date: 20251022
  Receipt Date: 20251022
  Transmission Date: 20260118
  Serious: No
  Sender: CSL BEHRING
  Company Number: US-BEH-2025221547

PATIENT
  Sex: Female

DRUGS (5)
  1. HIZENTRA [Suspect]
     Active Substance: HUMAN IMMUNOGLOBULIN G
     Indication: Hypergammaglobulinaemia
     Dosage: 10 G, TIW
     Route: 058
     Dates: start: 202505
  2. HIZENTRA [Suspect]
     Active Substance: HUMAN IMMUNOGLOBULIN G
     Indication: Autonomic neuropathy
  3. WAKIX [Concomitant]
     Active Substance: PITOLISANT HYDROCHLORIDE
     Dosage: WEEK 1: TAKE 2 TABLETS (8.9MG) 1 TIME A DAY UPON AWAKENING FOR 7 DAYS, QW
     Route: 048
  4. WAKIX [Concomitant]
     Active Substance: PITOLISANT HYDROCHLORIDE
     Dosage: WEEK 2: TAKE 1 TABLET (17.8MG) 1 TIME A DAY UPON AWAKENING FOR 7 DAYS, QW
     Route: 048
  5. WAKIX [Concomitant]
     Active Substance: PITOLISANT HYDROCHLORIDE
     Dosage: WEEK 3 AND THEREAFTER: TAKE 2 TABLETS (35.6MG) BY MOUTH 1 TIME A DAY UPON AWAKENING, QW

REACTIONS (4)
  - Dyspnoea [Unknown]
  - Pruritus [Unknown]
  - Headache [Unknown]
  - Decreased appetite [Unknown]
